FAERS Safety Report 6348773-5 (Version None)
Quarter: 2009Q3

REPORT INFORMATION
  Report Type: 
  Country: None (occurrence: None)
  Receive Date: 20090911
  Receipt Date: 20090902
  Transmission Date: 20100115
  Serious: Yes (Other)
  Sender: FDA-Public Use
  Company Number: US-AMGEN-QUU363087

PATIENT
  Sex: Female

DRUGS (1)
  1. ENBREL [Suspect]
     Indication: RHEUMATOID ARTHRITIS
     Route: 058
     Dates: start: 20090601

REACTIONS (10)
  - ALLERGY TO CHEMICALS [None]
  - ERYTHEMA [None]
  - EYE SWELLING [None]
  - FATIGUE [None]
  - HYPERSENSITIVITY [None]
  - JOINT CREPITATION [None]
  - LIP SWELLING [None]
  - LUNG DISORDER [None]
  - MALAISE [None]
  - SWELLING FACE [None]
